FAERS Safety Report 4462195-3 (Version None)
Quarter: 2004Q3

REPORT INFORMATION
  Report Type: 
  Country: None (occurrence: None)
  Receive Date: 20040928
  Receipt Date: 20040913
  Transmission Date: 20050211
  Serious: Yes (Death)
  Sender: FDA-Public Use
  Company Number: 2004S1002336

PATIENT
  Age: 48 Year
  Sex: Male

DRUGS (8)
  1. CLOZAPINE [Suspect]
     Indication: SCHIZOAFFECTIVE DISORDER
     Dosage: 75MG, QD, ORAL
     Route: 048
     Dates: start: 20000801, end: 20040726
  2. CLOZAPINE TABELTS 100MG MYLAN [Suspect]
     Indication: SCHIZOAFFECTIVE DISORDER
     Dosage: 400MG HS, ORAL
     Route: 048
     Dates: start: 20000801, end: 20040726
  3. COGENTIN [Suspect]
  4. ABILIFY [Suspect]
  5. SIMVASTATIN [Concomitant]
  6. ARIPIPRAZOLE [Concomitant]
  7. LEVOTHYROXINE SODIUM [Concomitant]
  8. BENZTROPINE MESYLATE [Concomitant]

REACTIONS (1)
  - DEATH [None]
